FAERS Safety Report 20758115 (Version 1)
Quarter: 2022Q2

REPORT INFORMATION
  Report Type: Spontaneous
  Country: US (occurrence: US)
  Receive Date: 20220427
  Receipt Date: 20220427
  Transmission Date: 20220721
  Serious: No
  Sender: FDA-Public Use
  Company Number: US-PFIZER INC-202101176844

PATIENT
  Age: 65 Year
  Sex: Female

DRUGS (3)
  1. CHANTIX [Suspect]
     Active Substance: VARENICLINE TARTRATE
     Indication: Smoking cessation therapy
     Dosage: 5 MG
     Dates: start: 20210730, end: 20210807
  2. LIPITOR [Suspect]
     Active Substance: ATORVASTATIN CALCIUM
     Indication: Blood cholesterol increased
     Dosage: UNK
     Dates: start: 20210730, end: 20210805
  3. METFORMIN [Suspect]
     Active Substance: METFORMIN HYDROCHLORIDE
     Indication: Glucose tolerance impaired
     Dosage: 500 MG (AFTER 2 DAYS SHE STARTED TAKING 2 A DAY)
     Dates: start: 20210730, end: 20210802

REACTIONS (9)
  - Gingival pain [Unknown]
  - Insomnia [Unknown]
  - Pain [Unknown]
  - Nerve injury [Unknown]
  - Loose tooth [Unknown]
  - Feeding disorder [Unknown]
  - Nausea [Unknown]
  - Hyperventilation [Unknown]
  - Recalled product administered [Unknown]

NARRATIVE: CASE EVENT DATE: 20210101
